FAERS Safety Report 4777501-X (Version None)
Quarter: 2005Q3

REPORT INFORMATION
  Report Type: 
  Country: None (occurrence: None)
  Receive Date: 20050915
  Receipt Date: 20050902
  Transmission Date: 20060218
  Serious: Yes (Hospitalization, Other)
  Sender: FDA-Public Use
  Company Number: HQWYE110625AUG05

PATIENT
  Age: 22 Year
  Sex: Male
  Weight: 68.5 kg

DRUGS (12)
  1. RAPAMUNE [Suspect]
     Indication: PROPHYLAXIS AGAINST TRANSPLANT REJECTION
     Dosage: 9 MG EVERY OTHER DAY ALTERNATING WITH 10 MG ON ALTERNATE DAYS [^OFF STUDY THERAPY^], ORAL
     Route: 048
     Dates: start: 20050214, end: 20050820
  2. PREDNISONE [Suspect]
     Indication: PROPHYLAXIS AGAINST TRANSPLANT REJECTION
     Dosage: SEE IMAGE
     Route: 048
     Dates: end: 20050801
  3. PREDNISONE [Suspect]
     Indication: PROPHYLAXIS AGAINST TRANSPLANT REJECTION
     Dosage: SEE IMAGE
     Route: 048
     Dates: end: 20050801
  4. PROGRAF [Suspect]
     Indication: PROPHYLAXIS AGAINST TRANSPLANT REJECTION
     Dosage: SEE IMAGE
     Route: 048
     Dates: end: 20050801
  5. PROGRAF [Suspect]
     Indication: PROPHYLAXIS AGAINST TRANSPLANT REJECTION
     Dosage: SEE IMAGE
     Route: 048
     Dates: start: 20050801
  6. K-PHOS (POTASSIUM PHOSPHATE MONOBASIC) [Concomitant]
  7. SEPTRA DS [Concomitant]
  8. VALCYTE (VALGANICICLOVIR) [Concomitant]
  9. ROCALTROL [Concomitant]
  10. RANITIDINE [Concomitant]
  11. CLOTRIMAZOLE (CLOTRIMAZOLE) [Concomitant]
  12. ZENAPAX [Concomitant]

REACTIONS (3)
  - DRUG INEFFECTIVE [None]
  - KIDNEY TRANSPLANT REJECTION [None]
  - TUBULOINTERSTITIAL NEPHRITIS [None]
